FAERS Safety Report 4950972-1 (Version None)
Quarter: 2006Q1

REPORT INFORMATION
  Report Type: 
  Country: None (occurrence: None)
  Receive Date: 20060315
  Receipt Date: 20060221
  Transmission Date: 20060701
  Serious: Yes (Death, Hospitalization)
  Sender: FDA-Public Use
  Company Number: EWC050744767

PATIENT
  Age: 63 Year
  Sex: Male
  Weight: 59 kg

DRUGS (5)
  1. PEMETREXED (PEMETREXED)VIAL [Suspect]
     Indication: MESOTHELIOMA
     Dosage: 845 MG, OTHER, INTRAVENOUS
     Route: 042
     Dates: start: 20041115
  2. CARBOPLATIN [Suspect]
     Indication: MESOTHELIOMA
     Dosage: 525 MG, OTHER, INTRAVENOUS
     Route: 042
     Dates: start: 20041115
  3. FOLIC ACID [Concomitant]
  4. VITAMIN B12 [Concomitant]
  5. DEXAMETHASONE TAB [Concomitant]

REACTIONS (10)
  - CAMPYLOBACTER INFECTION [None]
  - DEHYDRATION [None]
  - DRUG INTOLERANCE [None]
  - DYSPEPSIA [None]
  - FAECAL VOMITING [None]
  - GASTROINTESTINAL DISORDER [None]
  - HYPERVOLAEMIA [None]
  - ILEITIS [None]
  - SEPTIC SHOCK [None]
  - VOMITING [None]
